FAERS Safety Report 18546684 (Version 1)
Quarter: 2020Q4

REPORT INFORMATION
  Report Type: Spontaneous
  Country: DE (occurrence: DE)
  Receive Date: 20201125
  Receipt Date: 20201125
  Transmission Date: 20210114
  Serious: Yes (Other)
  Sender: FDA-Public Use
  Company Number: DE-JNJFOC-20201138352

PATIENT
  Sex: Female

DRUGS (2)
  1. REMICADE [Suspect]
     Active Substance: INFLIXIMAB
     Indication: CROHN^S DISEASE
     Route: 042
  2. MOTILIUM [Suspect]
     Active Substance: DOMPERIDONE
     Indication: CONSTIPATION
     Route: 065

REACTIONS (5)
  - Drug intolerance [Unknown]
  - Skin reaction [Unknown]
  - Anticholinergic syndrome [Unknown]
  - Constipation [Unknown]
  - Megacolon [Unknown]
